FAERS Safety Report 11139782 (Version 3)
Quarter: 2017Q4

REPORT INFORMATION
  Report Type: Spontaneous
  Country: JP (occurrence: JP)
  Receive Date: 20150527
  Receipt Date: 20171211
  Transmission Date: 20180320
  Serious: Yes (Hospitalization, Other)
  Sender: FDA-Public Use
  Company Number: JP-OTSUKA-2015_001683

PATIENT

DRUGS (8)
  1. VALPROATE SODIUM. [Concomitant]
     Active Substance: VALPROATE SODIUM
     Indication: PRODUCT USED FOR UNKNOWN INDICATION
     Dosage: 600 MG, QD
     Route: 065
     Dates: start: 20130407, end: 20150428
  2. ABILIFY [Suspect]
     Active Substance: ARIPIPRAZOLE
     Indication: BIPOLAR DISORDER
     Dosage: 30 MG/DAY
     Route: 048
  3. NITRAZEPAM [Concomitant]
     Active Substance: NITRAZEPAM
     Indication: SLEEP DISORDER
     Dosage: 10 MG/DAY
     Route: 065
     Dates: start: 20130407, end: 20150428
  4. ABILIFY [Suspect]
     Active Substance: ARIPIPRAZOLE
     Indication: BIPOLAR I DISORDER
     Dosage: 30 MG/DAY
     Route: 048
     Dates: start: 20150413, end: 20150428
  5. CARBAMAZEPINE. [Concomitant]
     Active Substance: CARBAMAZEPINE
     Indication: BIPOLAR DISORDER
     Dosage: 600 MG/DAY
     Route: 048
     Dates: start: 20130407, end: 20150428
  6. ESTAZOLAM. [Concomitant]
     Active Substance: ESTAZOLAM
     Indication: SLEEP DISORDER
     Dosage: 4 MG/DAY
     Route: 048
     Dates: start: 20130407, end: 20150428
  7. SODIUM VALPROATE [Concomitant]
     Active Substance: VALPROATE SODIUM
     Indication: BIPOLAR DISORDER
     Dosage: 600 MG/DAY
     Route: 048
     Dates: start: 20130407, end: 20150428
  8. CARBAMAZEPINE. [Concomitant]
     Active Substance: CARBAMAZEPINE
     Indication: PRODUCT USED FOR UNKNOWN INDICATION
     Dosage: 600 MG, QD
     Route: 065
     Dates: start: 20130407, end: 20150428

REACTIONS (5)
  - Electrolyte imbalance [Recovered/Resolved]
  - Blood creatine phosphokinase increased [Recovered/Resolved]
  - Vomiting [Unknown]
  - Abnormal behaviour [Unknown]
  - Nausea [Unknown]

NARRATIVE: CASE EVENT DATE: 20150425
